FAERS Safety Report 5210564-6 (Version None)
Quarter: 2006Q4

REPORT INFORMATION
  Report Type: 
  Country: None (occurrence: None)
  Receive Date: 20061106
  Receipt Date: 20060606
  Transmission Date: 20070319
  Serious: Yes (Hospitalization)
  Sender: FDA-Public Use
  Company Number: US-JNJFOC-20060601502

PATIENT
  Age: 61 Year
  Sex: Male

DRUGS (1)
  1. MOTRIN [Suspect]
     Indication: DRUG USE FOR UNKNOWN INDICATION
     Dosage: 3200-4000 MG
     Dates: start: 20060427, end: 20060427

REACTIONS (5)
  - BLOOD ALBUMIN INCREASED [None]
  - HYPERCALCAEMIA [None]
  - OVERDOSE [None]
  - PROTEIN TOTAL INCREASED [None]
  - RENAL FAILURE ACUTE [None]
